FAERS Safety Report 9244408 (Version 4)
Quarter: 2013Q4

REPORT INFORMATION
  Report Type: Spontaneous
  Country: GB (occurrence: GB)
  Receive Date: 20130422
  Receipt Date: 20131204
  Transmission Date: 20140711
  Serious: Yes (Death, Other)
  Sender: FDA-Public Use
  Company Number: GB-ACCORD-017227

PATIENT
  Sex: Male

DRUGS (2)
  1. MYCOPHENOLATE MOFETIL [Suspect]
     Indication: PRODUCT USED FOR UNKNOWN INDICATION
  2. NPLATE [Suspect]
     Indication: IMMUNE THROMBOCYTOPENIC PURPURA

REACTIONS (10)
  - Protein-losing gastroenteropathy [Fatal]
  - Oedema peripheral [Unknown]
  - Duodenal ulcer [Unknown]
  - Malaise [Unknown]
  - Platelet count decreased [Unknown]
  - Blood albumin decreased [Unknown]
  - Pneumonia [Fatal]
  - Immune thrombocytopenic purpura [Fatal]
  - Hypertension [Fatal]
  - Gout [Fatal]
